FAERS Safety Report 4773298-8 (Version None)
Quarter: 2005Q3

REPORT INFORMATION
  Report Type: 
  Country: None (occurrence: None)
  Receive Date: 20050916
  Receipt Date: 20050825
  Transmission Date: 20060218
  Serious: Yes (Other)
  Sender: FDA-Public Use
  Company Number: USA040978952

PATIENT
  Age: 17 Year
  Sex: Female

DRUGS (4)
  1. STRATTERA [Suspect]
     Indication: ATTENTION DEFICIT/HYPERACTIVITY DISORDER
     Dosage: 40 MG DAY
     Dates: start: 20040722, end: 20040816
  2. ZOLOFT [Concomitant]
  3. CARBAMAZEPINE [Concomitant]
  4. LESCOL [Concomitant]

REACTIONS (5)
  - ANTICONVULSANT DRUG LEVEL ABOVE THERAPEUTIC [None]
  - CONVULSION [None]
  - DIZZINESS [None]
  - EPILEPSY [None]
  - LOSS OF CONSCIOUSNESS [None]
